FAERS Safety Report 8340302-X (Version None)
Quarter: 2012Q2

REPORT INFORMATION
  Report Type: 
  Country: None (occurrence: None)
  Receive Date: 20120507
  Receipt Date: 20120507
  Transmission Date: 20120825
  Serious: Yes (Hospitalization)
  Sender: FDA-Public Use
  Company Number: None

PATIENT
  Age: 54 Year
  Sex: Female
  Weight: 109.31 kg

DRUGS (1)
  1. LATUDA [Suspect]
     Dosage: |STRENGTH: 40 MG|
     Dates: start: 20120502, end: 20120504

REACTIONS (1)
  - BRADYCARDIA [None]
